FAERS Safety Report 13455088 (Version 7)
Quarter: 2018Q1

REPORT INFORMATION
  Report Type: Spontaneous
  Country: US (occurrence: US)
  Receive Date: 20170419
  Receipt Date: 20180308
  Transmission Date: 20180508
  Serious: Yes (Other)
  Sender: FDA-Public Use
  Company Number: US-ASTRAZENECA-2017SE38587

PATIENT
  Age: 826 Month
  Sex: Female
  Weight: 46.7 kg

DRUGS (10)
  1. LYNPARZA [Suspect]
     Active Substance: OLAPARIB
     Indication: OVARIAN CANCER
     Route: 048
     Dates: start: 20170424
  2. TYLENOL [Concomitant]
     Active Substance: ACETAMINOPHEN
  3. LYNPARZA [Suspect]
     Active Substance: OLAPARIB
     Indication: OVARIAN CANCER
     Dosage: REDUCED DOSE OF FOUR 50 MG CAPSULES IN THE MORNING AND EIGHT 50 MG CAPSULES AT NIGHT
     Route: 048
     Dates: start: 20170718
  4. NEXIUM [Suspect]
     Active Substance: ESOMEPRAZOLE MAGNESIUM
     Indication: DYSPEPSIA
     Dosage: DAILY
     Route: 048
     Dates: start: 201704
  5. LYNPARZA [Suspect]
     Active Substance: OLAPARIB
     Indication: OVARIAN CANCER
     Dosage: 50 MG TWO TIMES A DAY, 8 CAPSULES IN THE MORNING AND 8 CAPSULES AT NIGHT
     Route: 048
     Dates: start: 201703
  6. LYNPARZA [Suspect]
     Active Substance: OLAPARIB
     Indication: OVARIAN CANCER
     Dosage: TWO 150MG TABLETS TWO TIMES A DAY
     Route: 048
     Dates: start: 201701, end: 20180223
  7. PEPCID [Concomitant]
     Active Substance: FAMOTIDINE
     Indication: DYSPEPSIA
     Dosage: 2.0DF UNKNOWN
     Route: 048
     Dates: start: 20170424
  8. ARIMIDEX [Suspect]
     Active Substance: ANASTROZOLE
     Indication: OVARIAN CANCER
     Dosage: GENERIC, ONE HALF PILL PER DAY
     Route: 048
     Dates: start: 20170327, end: 201704
  9. GAS-X [Concomitant]
     Active Substance: DIMETHICONE
  10. ARIMIDEX [Suspect]
     Active Substance: ANASTROZOLE
     Indication: OVARIAN CANCER
     Dosage: GENERIC, ONE WHOLE PILL PER DAY
     Route: 048
     Dates: start: 201704

REACTIONS (11)
  - Dyspnoea [Unknown]
  - Product use in unapproved indication [Unknown]
  - Malignant neoplasm progression [Unknown]
  - Diarrhoea [Not Recovered/Not Resolved]
  - Pain [Not Recovered/Not Resolved]
  - Fatigue [Not Recovered/Not Resolved]
  - Off label use [Unknown]
  - Product use issue [Unknown]
  - Pleural effusion [Recovered/Resolved]
  - Headache [Unknown]
  - Flatulence [Not Recovered/Not Resolved]

NARRATIVE: CASE EVENT DATE: 201703
